FAERS Safety Report 9706705 (Version 1)
Quarter: 2013Q4

REPORT INFORMATION
  Report Type: Spontaneous
  Country: CN (occurrence: CN)
  Receive Date: 20131125
  Receipt Date: 20131125
  Transmission Date: 20140711
  Serious: Yes (Hospitalization)
  Sender: FDA-Public Use
  Company Number: CN-ELI_LILLY_AND_COMPANY-CN201311007274

PATIENT
  Age: 77 Year
  Sex: Female

DRUGS (4)
  1. PEMETREXED [Suspect]
     Indication: LUNG CANCER METASTATIC
     Dosage: 0.6 G, OTHER
     Route: 065
     Dates: start: 20120220, end: 20120410
  2. CISPLATIN [Suspect]
     Indication: LUNG CANCER METASTATIC
     Dosage: 30 MG, QD
     Dates: start: 20120220, end: 20120410
  3. FOLIC ACID [Concomitant]
     Indication: SUPPLEMENTATION THERAPY
  4. VITAMIN B12 [Concomitant]
     Indication: SUPPLEMENTATION THERAPY

REACTIONS (3)
  - Cerebral infarction [Recovered/Resolved with Sequelae]
  - Neurotoxicity [Recovered/Resolved with Sequelae]
  - Optic nerve injury [Recovered/Resolved with Sequelae]
